FAERS Safety Report 17115244 (Version 1)
Quarter: 2019Q4

REPORT INFORMATION
  Report Type: Spontaneous
  Country: DE (occurrence: DE)
  Receive Date: 20191205
  Receipt Date: 20191205
  Transmission Date: 20200122
  Serious: Yes (Hospitalization, Disabling, Other)
  Sender: FDA-Public Use
  Company Number: DE-PFIZER INC-2019525015

PATIENT
  Age: 38 Year
  Sex: Female

DRUGS (5)
  1. PANTOPRAZOLE [Suspect]
     Active Substance: PANTOPRAZOLE
     Indication: GASTRITIS
     Dosage: 20 MG, 1X/DAY
     Route: 048
  2. MATRICARIA RECUTITA;POTENTILLA ANSERINA;PULSATILLA SPP.;SILYBUM MARIAN [GASTEO] [Suspect]
     Active Substance: HERBALS
     Indication: DYSPEPSIA
     Dosage: 90 GTT, 1X/DAY (90 GTT DROPS, QD)
     Route: 048
  3. CERAZETTE [DESOGESTREL] [Suspect]
     Active Substance: DESOGESTREL
     Indication: CONTRACEPTION
     Dosage: 1 DF, 1X/DAY
     Route: 048
  4. SINUPRET [ASCORBIC ACID;GENTIANA LUTEA ROOT;PRIMULA SPP. FLOWER;RUMEX [Concomitant]
     Indication: UPPER RESPIRATORY TRACT INFLAMMATION
     Dosage: UNK, 1X/DAY
     Route: 048
  5. SUMATRIPTAN. [Suspect]
     Active Substance: SUMATRIPTAN
     Indication: MIGRAINE
     Dosage: 100 MG, UNK
     Route: 048

REACTIONS (1)
  - Acute hepatic failure [Unknown]

NARRATIVE: CASE EVENT DATE: 20191107
